FAERS Safety Report 5583577-2 (Version None)
Quarter: 2007Q4

REPORT INFORMATION
  Report Type: 
  Country: None (occurrence: None)
  Receive Date: 20071231
  Receipt Date: 20071223
  Transmission Date: 20080405
  Serious: Yes (Other)
  Sender: FDA-Public Use
  Company Number: CHPA2007US14328

PATIENT
  Sex: Male

DRUGS (1)
  1. NODOZ (NCH)(CAFFEINE) CAPLET [Suspect]
     Dosage: 6000 MG, ONCE/SINGLE, ORAL
     Route: 048

REACTIONS (1)
  - NO ADVERSE DRUG REACTION [None]
